FAERS Safety Report 7117932-6 (Version None)
Quarter: 2010Q4

REPORT INFORMATION
  Report Type: 
  Country: None (occurrence: None)
  Receive Date: 20101118
  Receipt Date: 20101118
  Transmission Date: 20110411
  Serious: No
  Sender: FDA-Public Use
  Company Number: None

PATIENT
  Sex: Female
  Weight: 70 kg

DRUGS (2)
  1. WARFARIN SODIUM [Suspect]
     Indication: PERIPHERAL VASCULAR DISORDER
     Dates: start: 20101025, end: 20101109
  2. WARFARIN SODIUM [Suspect]
     Indication: THROMBOSIS PROPHYLAXIS
     Dates: start: 20101025, end: 20101109

REACTIONS (2)
  - INTERNATIONAL NORMALISED RATIO DECREASED [None]
  - PRODUCT SUBSTITUTION ISSUE [None]
